FAERS Safety Report 16487754 (Version 1)
Quarter: 2019Q2

REPORT INFORMATION
  Report Type: Spontaneous
  Country: US (occurrence: US)
  Receive Date: 20190627
  Receipt Date: 20190627
  Transmission Date: 20190711
  Serious: No
  Sender: FDA-Public Use
  Company Number: US-JNJFOC-20190618114

PATIENT
  Sex: Female

DRUGS (1)
  1. GOLIMUMAB SOLUTION FOR INJECTION [Suspect]
     Active Substance: GOLIMUMAB
     Indication: PRODUCT USED FOR UNKNOWN INDICATION
     Route: 058

REACTIONS (3)
  - Muscle spasms [Unknown]
  - Therapeutic response decreased [Unknown]
  - Musculoskeletal stiffness [Unknown]
